FAERS Safety Report 8166533-X (Version None)
Quarter: 2012Q1

REPORT INFORMATION
  Report Type: 
  Country: None (occurrence: None)
  Receive Date: 20120227
  Receipt Date: 20111219
  Transmission Date: 20120608
  Serious: Yes (Other)
  Sender: FDA-Public Use
  Company Number: US-BRISTOL-MYERS SQUIBB COMPANY-15252778

PATIENT
  Sex: Female
  Weight: 84 kg

DRUGS (5)
  1. BENADRYL [Concomitant]
     Indication: HYPERSENSITIVITY
  2. AVASTIN [Concomitant]
     Indication: BREAST CANCER
  3. TAXOL [Suspect]
     Indication: BREAST CANCER
     Dates: start: 20100101, end: 20100701
  4. FRAGMIN [Suspect]
     Indication: COAGULOPATHY
     Dosage: FORMULATION: SOLUTION FOR INJECTION
     Dates: start: 20100101
  5. FRAGMIN [Suspect]
     Indication: BREAST CANCER
     Dosage: FORMULATION: SOLUTION FOR INJECTION
     Dates: start: 20100101

REACTIONS (7)
  - HYPERTENSION [None]
  - ONYCHOMADESIS [None]
  - LACRIMATION INCREASED [None]
  - CONTUSION [None]
  - PARAESTHESIA [None]
  - ALOPECIA [None]
  - PAIN IN EXTREMITY [None]
